FAERS Safety Report 4653313-2 (Version None)
Quarter: 2005Q2

REPORT INFORMATION
  Report Type: 
  Country: None (occurrence: None)
  Receive Date: 20050505
  Receipt Date: 20050428
  Transmission Date: 20051028
  Serious: Yes (Hospitalization)
  Sender: FDA-Public Use
  Company Number: US-BRISTOL-MYERS SQUIBB COMPANY-12950614

PATIENT
  Age: 49 Year
  Sex: Male
  Weight: 96 kg

DRUGS (4)
  1. CETUXIMAB [Suspect]
     Indication: OESOPHAGEAL CARCINOMA
     Dosage: 1ST CETUXIMAB INFUSION ADMINISTERED ON 15-MAR-2005 (500 MG IV WEEKLY X 6).
     Route: 042
     Dates: start: 20050418, end: 20050418
  2. CARBOPLATIN [Suspect]
     Indication: OESOPHAGEAL CARCINOMA
     Dosage: 1ST CARBOPLATIN INFUSION ADMINISTERED ON 15-MAR-2005 (160 MG IV WEEKLY X 6).
     Route: 042
     Dates: start: 20050418, end: 20050418
  3. TAXOL [Suspect]
     Indication: OESOPHAGEAL CARCINOMA
     Dosage: 1ST TAXOL INFUSION ADMINISTERED ON 15-MAR-2005 (160 MG IV WEEKLY X 6).
     Route: 042
     Dates: start: 20050418, end: 20050418
  4. RADIATION THERAPY [Suspect]
     Indication: OESOPHAGEAL CARCINOMA
     Dosage: DAILY RADIATION TREATMENT. PATIENT RECEIVED 28 RADIATION TREATMENTS.
     Dates: start: 20050421, end: 20050421

REACTIONS (5)
  - COUGH [None]
  - NAUSEA [None]
  - OESOPHAGEAL PAIN [None]
  - OESOPHAGITIS [None]
  - PYREXIA [None]
